FAERS Safety Report 6181857-3 (Version None)
Quarter: 2009Q2

REPORT INFORMATION
  Report Type: 
  Country: None (occurrence: None)
  Receive Date: 20090506
  Receipt Date: 20090429
  Transmission Date: 20091009
  Serious: Yes (Other)
  Sender: FDA-Public Use
  Company Number: CA-BAXTER-2009BH006567

PATIENT
  Sex: Male

DRUGS (3)
  1. BREVIBLOC [Suspect]
     Indication: VENTRICULAR FIBRILLATION
     Route: 042
     Dates: start: 20080101, end: 20080101
  2. BREVIBLOC [Suspect]
     Indication: VENTRICULAR TACHYCARDIA
     Route: 042
     Dates: start: 20080101, end: 20080101
  3. BREVIBLOC [Suspect]
     Indication: CARDIAC ARREST
     Route: 042
     Dates: start: 20080101, end: 20080101

REACTIONS (1)
  - DRUG INEFFECTIVE [None]
